FAERS Safety Report 9166665 (Version 1)
Quarter: 2013Q1

REPORT INFORMATION
  Report Type: Report from Study
  Country: US (occurrence: US)
  Receive Date: 20130315
  Receipt Date: 20130315
  Transmission Date: 20140127
  Serious: No
  Sender: FDA-Public Use
  Company Number: US-009507513-1303USA004131

PATIENT
  Sex: Female
  Weight: 191 kg

DRUGS (8)
  1. VICTRELIS [Suspect]
     Indication: PRODUCT USED FOR UNKNOWN INDICATION
     Dosage: 200 MG, TID
     Route: 048
     Dates: start: 20111111
  2. PEGINTERFERON ALFA-2A [Suspect]
     Indication: PRODUCT USED FOR UNKNOWN INDICATION
     Dosage: UNK
  3. RIBAVIRIN [Suspect]
     Indication: PRODUCT USED FOR UNKNOWN INDICATION
     Route: 048
  4. MELALEUCA OIL [Concomitant]
  5. HYDROCHLOROTHIAZIDE (+) TRIAMTERENE [Concomitant]
  6. VIAGRA [Concomitant]
  7. VITAMIN D (UNSPECIFIED) [Concomitant]
  8. AMLODIPINE [Concomitant]

REACTIONS (5)
  - Fatigue [Unknown]
  - Headache [Unknown]
  - Dyspnoea [Unknown]
  - Dizziness [Unknown]
  - Diarrhoea [Unknown]
